FAERS Safety Report 9373995 (Version 1)
Quarter: 2013Q2

REPORT INFORMATION
  Report Type: Spontaneous
  Country: FR (occurrence: FR)
  Receive Date: 20130628
  Receipt Date: 20130628
  Transmission Date: 20140414
  Serious: Yes (Hospitalization)
  Sender: FDA-Public Use
  Company Number: FR-ABBOTT-13X-056-1110745-00

PATIENT
  Age: 91 Year
  Sex: Female

DRUGS (7)
  1. ODRIK [Suspect]
     Indication: HYPERTENSION
     Route: 048
  2. FUROSEMIDE TEVA [Suspect]
     Indication: CARDIAC FAILURE
     Route: 048
     Dates: start: 20130511, end: 20130610
  3. VASTAREL [Suspect]
     Indication: VERTIGO
     Route: 048
  4. KARDEGIC [Suspect]
     Indication: PRODUCT USED FOR UNKNOWN INDICATION
     Route: 048
  5. STILNOX [Suspect]
     Indication: PRODUCT USED FOR UNKNOWN INDICATION
     Route: 048
  6. ISORYTHM [Suspect]
     Indication: PRODUCT USED FOR UNKNOWN INDICATION
     Route: 048
  7. CORDARONE [Suspect]
     Indication: ARRHYTHMIA
     Route: 048
     Dates: start: 20130607

REACTIONS (4)
  - Fall [Recovered/Resolved]
  - Vertigo [Recovered/Resolved]
  - Pulmonary oedema [Recovered/Resolved]
  - Arrhythmia [Recovered/Resolved]
